FAERS Safety Report 8159263 (Version 2)
Quarter: 2014Q3

REPORT INFORMATION
  Report Type: Spontaneous
  Country: US (occurrence: US)
  Receive Date: 20110928
  Receipt Date: 20140812
  Transmission Date: 20150326
  Serious: Yes (Hospitalization, Other)
  Sender: FDA-Public Use
  Company Number: US-US-EMD SERONO, INC.-7084355

PATIENT
  Sex: Female

DRUGS (1)
  1. REBIF [Suspect]
     Active Substance: INTERFERON BETA-1A
     Indication: PRODUCT USED FOR UNKNOWN INDICATION
     Route: 058
     Dates: start: 20050325

REACTIONS (9)
  - Incision site cellulitis [Not Recovered/Not Resolved]
  - Scar [Not Recovered/Not Resolved]
  - Joint injury [Unknown]
  - Decreased immune responsiveness [Unknown]
  - Lymphadenitis [Recovered/Resolved]
  - Arthritis bacterial [Unknown]
  - Cartilage injury [Unknown]
  - Fall [Unknown]
  - Cartilage injury [Recovered/Resolved]

NARRATIVE: CASE EVENT DATE: 2008
